FAERS Safety Report 13442160 (Version 1)
Quarter: 2017Q2

REPORT INFORMATION
  Report Type: Spontaneous
  Country: US (occurrence: US)
  Receive Date: 20170414
  Receipt Date: 20170414
  Transmission Date: 20170830
  Serious: Yes (Life-Threatening, Hospitalization, Disabling)
  Sender: FDA-Public Use
  Company Number: None

PATIENT
  Age: 42 Year
  Sex: Female
  Weight: 97.07 kg

DRUGS (7)
  1. RISPERDAL CONSTA [Suspect]
     Active Substance: RISPERIDONE
  2. SYNTHROID [Concomitant]
     Active Substance: LEVOTHYROXINE SODIUM
  3. LOPAMINE [Suspect]
     Active Substance: LOPERAMIDE HYDROCHLORIDE
     Indication: BIPOLAR DISORDER
     Dosage: QUANITY - 2 PILLS, 1 PILL, 2 PILLS?FREQUENCY - BID, ONCE A DAY?ROUTE - PO, INJECTION
     Dates: start: 20170203, end: 20170220
  4. MYLAX [Concomitant]
  5. ZYPREXA [Suspect]
     Active Substance: OLANZAPINE
  6. LOPAMINE [Suspect]
     Active Substance: LOPERAMIDE HYDROCHLORIDE
     Indication: SCHIZOAFFECTIVE DISORDER
     Dosage: QUANITY - 2 PILLS, 1 PILL, 2 PILLS?FREQUENCY - BID, ONCE A DAY?ROUTE - PO, INJECTION
     Dates: start: 20170203, end: 20170220
  7. AMBIEN [Suspect]
     Active Substance: ZOLPIDEM TARTRATE

REACTIONS (5)
  - Chest pain [None]
  - Night sweats [None]
  - Dizziness [None]
  - Hypoaesthesia [None]
  - Tremor [None]

NARRATIVE: CASE EVENT DATE: 201702
